FAERS Safety Report 9851051 (Version 1)
Quarter: 2014Q1

REPORT INFORMATION
  Report Type: Spontaneous
  Country: US (occurrence: US)
  Receive Date: 20140128
  Receipt Date: 20140128
  Transmission Date: 20141002
  Serious: No
  Sender: FDA-Public Use
  Company Number: US-DYAX CORP.-2013DX000114

PATIENT
  Age: 65 Year
  Sex: Female
  Weight: 135.29 kg

DRUGS (10)
  1. KALBITOR [Suspect]
     Indication: HEREDITARY ANGIOEDEMA
     Route: 058
     Dates: start: 20130522, end: 20130522
  2. KALBITOR [Suspect]
     Route: 058
     Dates: start: 20130522, end: 20130522
  3. KALBITOR [Suspect]
     Route: 058
     Dates: start: 20130603, end: 20130603
  4. KALBITOR [Suspect]
     Route: 058
     Dates: start: 20130603, end: 20130603
  5. KALBITOR [Suspect]
     Route: 058
     Dates: start: 20130606, end: 20130606
  6. KALBITOR [Suspect]
     Route: 058
     Dates: start: 20130606, end: 20130606
  7. KALBITOR [Suspect]
     Route: 058
     Dates: start: 20110111
  8. PAXIL [Concomitant]
     Indication: HYPERHIDROSIS
     Route: 048
  9. ASPIRIN [Concomitant]
     Indication: PRODUCT USED FOR UNKNOWN INDICATION
     Route: 048
  10. NAPROXEN [Concomitant]
     Indication: PAIN
     Route: 048

REACTIONS (5)
  - Cellulitis [Recovered/Resolved]
  - Oedema peripheral [Recovered/Resolved]
  - Skin disorder [Recovered/Resolved]
  - Hereditary angioedema [Recovered/Resolved]
  - Therapeutic response unexpected [Unknown]
